FAERS Safety Report 25567128 (Version 2)
Quarter: 2025Q3

REPORT INFORMATION
  Report Type: Spontaneous
  Country: US (occurrence: US)
  Receive Date: 20250716
  Receipt Date: 20250804
  Transmission Date: 20251021
  Serious: No
  Sender: MERCK SHARP & DOHME LLC
  Company Number: US-009507513-2308619

PATIENT
  Sex: Female
  Weight: 55.8 kg

DRUGS (17)
  1. SOTATERCEPT [Suspect]
     Active Substance: SOTATERCEPT
     Indication: Product used for unknown indication
     Route: 065
  2. SOTATERCEPT [Suspect]
     Active Substance: SOTATERCEPT
  3. SOTATERCEPT [Suspect]
     Active Substance: SOTATERCEPT
  4. SOTATERCEPT [Suspect]
     Active Substance: SOTATERCEPT
  5. TYVASO DPI [Suspect]
     Active Substance: TREPROSTINIL
     Indication: Pulmonary arterial hypertension
     Dosage: FORMULATION: DRY POWDER; ROUTE OF ADMINISTRATION: INHALATION (IH); STRENGTH: 32 UG
     Route: 055
     Dates: start: 20230227
  6. IRON [Concomitant]
     Active Substance: IRON
  7. SPIRONOLACTONE [Concomitant]
     Active Substance: SPIRONOLACTONE
  8. LETAIRIS [Concomitant]
     Active Substance: AMBRISENTAN
  9. TORSEMIDE [Concomitant]
     Active Substance: TORSEMIDE
  10. omeprazole delayed release [DR] [Concomitant]
  11. ELIQUIS [Concomitant]
     Active Substance: APIXABAN
  12. POTASSIUM CHLORIDE [Concomitant]
     Active Substance: POTASSIUM CHLORIDE
  13. LEVOTHYROXINE [Concomitant]
     Active Substance: LEVOTHYROXINE
  14. REVATIO [Concomitant]
     Active Substance: SILDENAFIL CITRATE
  15. SOTALOL [Concomitant]
     Active Substance: SOTALOL
  16. OXYGEN [Concomitant]
     Active Substance: OXYGEN
  17. VITAMIN B12 [Concomitant]
     Active Substance: CYANOCOBALAMIN

REACTIONS (1)
  - Dizziness [Not Recovered/Not Resolved]
